FAERS Safety Report 25094865 (Version 1)
Quarter: 2025Q1

REPORT INFORMATION
  Report Type: Spontaneous
  Country: PT (occurrence: PT)
  Receive Date: 20250319
  Receipt Date: 20250319
  Transmission Date: 20250409
  Serious: Yes (Hospitalization, Other)
  Sender: BRISTOL-MYERS SQUIBB COMPANY
  Company Number: PT-BRISTOL-MYERS SQUIBB COMPANY-2025-035873

PATIENT
  Age: 53 Year
  Sex: Male
  Weight: 79.2 kg

DRUGS (2)
  1. CAMZYOS [Suspect]
     Active Substance: MAVACAMTEN
     Indication: Hypertrophic cardiomyopathy
     Route: 048
     Dates: start: 20241228, end: 20250303
  2. CAMZYOS [Suspect]
     Active Substance: MAVACAMTEN
     Dates: start: 202411

REACTIONS (5)
  - Heart failure with reduced ejection fraction [Recovering/Resolving]
  - Off label use [Unknown]
  - Myocarditis [Recovering/Resolving]
  - Cardiac ventricular thrombosis [Unknown]
  - Monocytosis [Unknown]

NARRATIVE: CASE EVENT DATE: 20250303
